FAERS Safety Report 16960927 (Version 5)
Quarter: 2020Q2

REPORT INFORMATION
  Report Type: Spontaneous
  Country: US (occurrence: US)
  Receive Date: 20191025
  Receipt Date: 20200609
  Transmission Date: 20200713
  Serious: Yes (Congenital Anomaly, Other)
  Sender: FDA-Public Use
  Company Number: NVSC2019US015264

PATIENT
  Age: 0 Day
  Sex: Male

DRUGS (1)
  1. ZOFRAN [Suspect]
     Active Substance: ONDANSETRON HYDROCHLORIDE
     Indication: FOETAL EXPOSURE DURING PREGNANCY
     Dosage: MOTHER DOSE: 08 MG, UNK
     Route: 064

REACTIONS (29)
  - Renal disorder [Unknown]
  - Asthma [Unknown]
  - Lactose intolerance [Unknown]
  - Renal hypertrophy [Unknown]
  - Atrial septal defect [Unknown]
  - Congenital vesicoureteric reflux [Recovered/Resolved]
  - Attention deficit hyperactivity disorder [Unknown]
  - Ureteral disorder [Unknown]
  - Hypertension [Unknown]
  - Dyspnoea [Unknown]
  - Tonsillar hypertrophy [Unknown]
  - Reflux nephropathy [Unknown]
  - Nasopharyngitis [Unknown]
  - Single functional kidney [Unknown]
  - Neonatal respiratory distress syndrome [Unknown]
  - Cough [Unknown]
  - Wheezing [Unknown]
  - Retinopathy of prematurity [Unknown]
  - Borderline personality disorder [Unknown]
  - Rhinorrhoea [Unknown]
  - Premature baby [Unknown]
  - Chronic kidney disease [Unknown]
  - Lung disorder [Unknown]
  - Generalised anxiety disorder [Unknown]
  - Congenital pulmonary hypertension [Unknown]
  - Patent ductus arteriosus [Unknown]
  - Renal aplasia [Unknown]
  - Injury [Unknown]
  - Foetal exposure during pregnancy [Unknown]

NARRATIVE: CASE EVENT DATE: 20050422
